FAERS Safety Report 9915539 (Version 6)
Quarter: 2014Q2

REPORT INFORMATION
  Report Type: Report from Study
  Country: CA (occurrence: CA)
  Receive Date: 20140221
  Receipt Date: 20140507
  Transmission Date: 20141212
  Serious: Yes (Hospitalization)
  Sender: FDA-Public Use
  Company Number: CA-ROCHE-1348234

PATIENT
  Age: 22 Year
  Sex: Female

DRUGS (4)
  1. RITUXAN [Suspect]
     Indication: IMMUNE THROMBOCYTOPENIC PURPURA
     Route: 042
     Dates: start: 201212, end: 20130228
  2. RITUXAN [Suspect]
     Route: 042
     Dates: start: 20140228, end: 20140228
  3. CYCLOSPORIN [Concomitant]
     Route: 065
     Dates: start: 201309
  4. FLAGYL [Concomitant]
     Route: 065
     Dates: start: 20140208

REACTIONS (7)
  - Infection [Unknown]
  - Eye haemorrhage [Unknown]
  - Haemoglobin decreased [Recovering/Resolving]
  - Haemorrhage [Unknown]
  - Platelet count decreased [Unknown]
  - Off label use [Unknown]
  - Drug ineffective [Unknown]
